FAERS Safety Report 10458454 (Version 1)
Quarter: 2014Q3

REPORT INFORMATION
  Report Type: Spontaneous
  Country: PT (occurrence: None)
  Receive Date: 20140915
  Receipt Date: 20140915
  Transmission Date: 20150326
  Serious: Yes (Death, Other)
  Sender: FDA-Public Use
  Company Number: PT-AIKEM-000703

PATIENT
  Age: 63 Year
  Sex: Male

DRUGS (9)
  1. RALTEGRAVIR(RALTEGRAVIR) [Concomitant]
  2. BASILIXIMAB [Suspect]
     Active Substance: BASILIXIMAB
     Indication: RENAL TRANSPLANT
  3. TACROLIMUS. [Suspect]
     Active Substance: TACROLIMUS
     Indication: RENAL TRANSPLANT
  4. CO-TRIMOXAZOL(CO-TRIMOXAZOL) [Concomitant]
  5. NYSTATIN(NYSTATIN) [Concomitant]
  6. MYCOPHENOLATE MOFETIL(MYCOPHENOLATE MOFETIL) [Suspect]
     Active Substance: MYCOPHENOLATE MOFETIL
     Indication: RENAL TRANSPLANT
  7. PREDNISOLONE. [Suspect]
     Active Substance: PREDNISOLONE
     Indication: RENAL TRANSPLANT
  8. ABACAVIR(ABACAVIR) [Concomitant]
  9. LAMIVUDINE(LAMIVUDINE)TABLET [Concomitant]
     Active Substance: LAMIVUDINE

REACTIONS (5)
  - Psychotic disorder [None]
  - Bronchopulmonary aspergillosis [None]
  - H1N1 influenza [None]
  - Pyelonephritis [None]
  - Oral herpes [None]
